FAERS Safety Report 18461889 (Version 1)
Quarter: 2020Q4

REPORT INFORMATION
  Report Type: Spontaneous
  Country: SE (occurrence: SE)
  Receive Date: 20201104
  Receipt Date: 20201104
  Transmission Date: 20210114
  Serious: Yes (Hospitalization)
  Sender: FDA-Public Use
  Company Number: SE-TEVA-2020-SE-1844145

PATIENT
  Age: 30 Year
  Sex: Female

DRUGS (1)
  1. ANTABUS [Suspect]
     Active Substance: DISULFIRAM
     Dates: start: 202007, end: 202009

REACTIONS (1)
  - Acute hepatic failure [Recovered/Resolved]

NARRATIVE: CASE EVENT DATE: 202009
